FAERS Safety Report 5602425-5 (Version None)
Quarter: 2008Q1

REPORT INFORMATION
  Report Type: 
  Country: None (occurrence: None)
  Receive Date: 20080125
  Receipt Date: 20080111
  Transmission Date: 20080703
  Serious: Yes (Hospitalization, Other)
  Sender: FDA-Public Use
  Company Number: US-ELI_LILLY_AND_COMPANY-US200711004431

PATIENT
  Sex: Female

DRUGS (2)
  1. EVISTA [Suspect]
     Indication: OSTEOPOROSIS
     Dosage: 60 MG, UNK
     Route: 048
  2. EVISTA [Suspect]
     Dosage: 60 MG, UNK

REACTIONS (4)
  - COLON CANCER [None]
  - DYSPHAGIA [None]
  - FALL [None]
  - HIP FRACTURE [None]
